FAERS Safety Report 13049555 (Version 1)
Quarter: 2016Q4

REPORT INFORMATION
  Report Type: Spontaneous
  Country: GB (occurrence: GB)
  Receive Date: 20161221
  Receipt Date: 20161221
  Transmission Date: 20170207
  Serious: Yes (Other)
  Sender: FDA-Public Use
  Company Number: GB-DEXPHARM-20162386

PATIENT

DRUGS (1)
  1. CHLORHEXIDINE ACETATE BP 0.02% [Suspect]
     Active Substance: CHLORHEXIDINE ACETATE
     Indication: INFECTION PROPHYLAXIS
     Route: 061

REACTIONS (1)
  - Chemical injury [Unknown]
